FAERS Safety Report 25808904 (Version 1)
Quarter: 2025Q3

REPORT INFORMATION
  Report Type: Spontaneous
  Country: US (occurrence: US)
  Receive Date: 20250916
  Receipt Date: 20250916
  Transmission Date: 20251021
  Serious: Yes (Hospitalization, Other)
  Sender: B. BRAUN MEDICAL INC.
  Company Number: US-B. Braun Medical Inc.-US-BBM-202503526

PATIENT
  Age: 27 Year
  Sex: Female

DRUGS (2)
  1. LEVETIRACETAM [Suspect]
     Active Substance: LEVETIRACETAM
  2. ZONISAMIDE [Suspect]
     Active Substance: ZONISAMIDE

REACTIONS (2)
  - Irritability [Unknown]
  - Logorrhoea [Unknown]
